FAERS Safety Report 18718344 (Version 1)
Quarter: 2021Q1

REPORT INFORMATION
  Report Type: Spontaneous
  Country: NO (occurrence: NO)
  Receive Date: 20210108
  Receipt Date: 20210108
  Transmission Date: 20210419
  Serious: Yes (Hospitalization, Disabling)
  Sender: FDA-Public Use
  Company Number: NVSC2021NO001102

PATIENT
  Age: 19 Year
  Sex: Male

DRUGS (2)
  1. PREDNISOLON [Concomitant]
     Active Substance: PREDNISOLONE
     Indication: COLITIS ULCERATIVE
     Dosage: 30 MG (MG INITIALLY (FROM OCTOBER), THEREAFTER REDUCED WITH 5 MG EACH WEEK. NOW: MAINTENANCE DOSE 5
     Route: 065
     Dates: start: 202010
  2. HYRIMOZ [Suspect]
     Active Substance: ADALIMUMAB-ADAZ
     Indication: COLITIS ULCERATIVE
     Dosage: 80 MG (80 MG INITIALLY, THEREAFTER 40 MG. THREE INJECTIONS (120 MG IN TOTAL)
     Route: 058
     Dates: start: 202011, end: 20201201

REACTIONS (1)
  - Myocarditis [Recovered/Resolved with Sequelae]

NARRATIVE: CASE EVENT DATE: 202012
